FAERS Safety Report 5924362-9 (Version None)
Quarter: 2008Q4

REPORT INFORMATION
  Report Type: 
  Country: None (occurrence: None)
  Receive Date: 20081020
  Receipt Date: 20081009
  Transmission Date: 20090506
  Serious: Yes (Other)
  Sender: FDA-Public Use
  Company Number: CA-ELI_LILLY_AND_COMPANY-CA200810002411

PATIENT
  Age: 53 Year
  Sex: Female

DRUGS (4)
  1. CYMBALTA [Suspect]
     Dosage: 60 MG, UNK
     Dates: start: 20080901
  2. PERINDOPRIL [Concomitant]
  3. PANTOPRAZOLE SODIUM [Concomitant]
  4. CRESTOR [Concomitant]

REACTIONS (9)
  - BLOOD PRESSURE DIASTOLIC DECREASED [None]
  - BLOOD PRESSURE SYSTOLIC INCREASED [None]
  - DYSKINESIA [None]
  - HEART RATE INCREASED [None]
  - HEPATIC FUNCTION ABNORMAL [None]
  - HEPATITIS C [None]
  - HYPERHIDROSIS [None]
  - PROTEINURIA [None]
  - RENAL IMPAIRMENT [None]
